FAERS Safety Report 16351796 (Version 1)
Quarter: 2019Q2

REPORT INFORMATION
  Report Type: Spontaneous
  Country: NG (occurrence: NG)
  Receive Date: 20190524
  Receipt Date: 20190524
  Transmission Date: 20190711
  Serious: Yes (Hospitalization, Other)
  Sender: FDA-Public Use
  Company Number: NG-AUROBINDO-AUR-APL-2019-030291

PATIENT

DRUGS (1)
  1. EFAVIRENZ, LAMIVUDINE AND TENOFOVIR DISOPROXIL FUMARATE [Suspect]
     Active Substance: EFAVIRENZ\LAMIVUDINE\TENOFOVIR DISOPROXIL FUMARATE
     Indication: HIV ANTIBODY POSITIVE
     Dosage: UNK
     Route: 065

REACTIONS (20)
  - Facial paresis [Recovering/Resolving]
  - Facial paralysis [Recovering/Resolving]
  - Blood HIV RNA increased [Unknown]
  - Papilloedema [Recovered/Resolved]
  - CSF protein increased [Unknown]
  - Blindness [Recovering/Resolving]
  - Musculoskeletal stiffness [Recovered/Resolved]
  - Visual impairment [Recovering/Resolving]
  - Pyrexia [Recovered/Resolved]
  - Kernig^s sign [Recovered/Resolved]
  - Sluggishness [Recovered/Resolved]
  - Headache [Recovering/Resolving]
  - Diplopia [Recovered/Resolved]
  - Pallor [Recovered/Resolved]
  - Photophobia [Recovered/Resolved]
  - Meningitis cryptococcal [Recovered/Resolved]
  - Restlessness [Recovered/Resolved]
  - Vision blurred [Recovering/Resolving]
  - Blood pressure increased [Recovered/Resolved]
  - Paralysis [Recovered/Resolved]
